FAERS Safety Report 6171956-4 (Version None)
Quarter: 2009Q2

REPORT INFORMATION
  Report Type: 
  Country: None (occurrence: None)
  Receive Date: 20090429
  Receipt Date: 20090414
  Transmission Date: 20091009
  Serious: Yes (Hospitalization, Other)
  Sender: FDA-Public Use
  Company Number: PHBS2007JP12450

PATIENT
  Sex: Female
  Weight: 17 kg

DRUGS (5)
  1. GLEEVEC [Suspect]
     Indication: CHRONIC MYELOID LEUKAEMIA
     Dosage: 300 MG/D
     Route: 048
     Dates: start: 20030707, end: 20071001
  2. GLEEVEC [Suspect]
     Dosage: 400 MG/M2/ DAY
     Route: 048
     Dates: end: 20070901
  3. PREDONINE [Suspect]
     Indication: RASH
     Dosage: 7.5 MG/D
     Route: 048
     Dates: start: 20030101
  4. PREDONINE [Suspect]
     Dosage: 5 MG/D
     Route: 065
     Dates: start: 20050801
  5. GASTER [Concomitant]
     Dosage: 10 MG/D
     Route: 048
     Dates: start: 20030101

REACTIONS (9)
  - BODY HEIGHT BELOW NORMAL [None]
  - BONE DENSITY DECREASED [None]
  - BONE DEVELOPMENT ABNORMAL [None]
  - FAILURE TO THRIVE [None]
  - GROWTH RETARDATION [None]
  - HEADACHE [None]
  - HYPOGAMMAGLOBULINAEMIA [None]
  - RASH [None]
  - VOMITING [None]
